FAERS Safety Report 6129264-3 (Version None)
Quarter: 2009Q1

REPORT INFORMATION
  Report Type: 
  Country: None (occurrence: None)
  Receive Date: 20090324
  Receipt Date: 20090310
  Transmission Date: 20090719
  Serious: No
  Sender: FDA-Public Use
  Company Number: US-BAYER-200914823NA

PATIENT
  Age: 25 Year
  Sex: Male

DRUGS (5)
  1. KOGENATE FS [Suspect]
     Indication: HAEMOPHILIA
     Dosage: 2000-2000-4000 UNITS
     Dates: start: 20070101
  2. KOGENATE FS [Suspect]
     Dosage: TOTAL DAILY DOSE: 4000 U
     Dates: start: 20090201
  3. NEURONTIN [Concomitant]
     Indication: PAIN
  4. LONG ACTING OXYCODONE [Concomitant]
  5. FENTANYL-25 [Concomitant]

REACTIONS (1)
  - HEPATIC ENZYME INCREASED [None]
